FAERS Safety Report 7527003-2 (Version None)
Quarter: 2011Q2

REPORT INFORMATION
  Report Type: 
  Country: None (occurrence: None)
  Receive Date: 20110606
  Receipt Date: 20110606
  Transmission Date: 20111010
  Serious: Yes (Death, Other)
  Sender: FDA-Public Use
  Company Number: IT-ABBOTT-11P-083-0728101-00

PATIENT
  Sex: Male

DRUGS (10)
  1. NORVASC [Concomitant]
     Indication: PRODUCT USED FOR UNKNOWN INDICATION
  2. OPTIRAY 300 [Suspect]
     Indication: COMPUTERISED TOMOGRAM THORAX
     Dosage: TOTAL
     Route: 042
     Dates: start: 20110517, end: 20110517
  3. OMEPRAZOLE [Concomitant]
     Indication: PRODUCT USED FOR UNKNOWN INDICATION
     Route: 048
  4. SPIRIVA [Concomitant]
     Indication: PRODUCT USED FOR UNKNOWN INDICATION
     Route: 048
  5. CLARITHROMYCIN [Suspect]
     Indication: BRONCHOPNEUMONIA
     Dosage: 500 MG POWDER/ 10 ML, ONCE DAILY
     Route: 042
     Dates: start: 20110511, end: 20110517
  6. REPAGLINIDE [Concomitant]
     Indication: PRODUCT USED FOR UNKNOWN INDICATION
     Route: 048
  7. LASIX [Concomitant]
     Indication: PRODUCT USED FOR UNKNOWN INDICATION
     Dosage: 20 MG / 2 ML
     Route: 042
  8. ROCEPHIN [Concomitant]
     Indication: BRONCHOPNEUMONIA
     Dosage: 1G POWDER / 3.5 ML
     Route: 042
  9. VENTRIN [Concomitant]
     Indication: PRODUCT USED FOR UNKNOWN INDICATION
     Route: 062
  10. CLEXANE T [Concomitant]
     Indication: PRODUCT USED FOR UNKNOWN INDICATION
     Dosage: 6000 UI / 0.6 ML SOLUTION
     Route: 058

REACTIONS (4)
  - GAZE PALSY [None]
  - RESPIRATORY ARREST [None]
  - DYSPNOEA [None]
  - EYE MOVEMENT DISORDER [None]
